FAERS Safety Report 13819180 (Version 1)
Quarter: 2017Q3

REPORT INFORMATION
  Report Type: Report from Study
  Country: US (occurrence: US)
  Receive Date: 20170731
  Receipt Date: 20170731
  Transmission Date: 20171127
  Serious: No
  Sender: FDA-Public Use
  Company Number: US-EXELIXIS-CABO-17008388

PATIENT
  Age: 50 Year
  Sex: Male

DRUGS (7)
  1. NEURONTIN [Concomitant]
     Active Substance: GABAPENTIN
  2. KEPPRA [Concomitant]
     Active Substance: LEVETIRACETAM
  3. LYRICA [Concomitant]
     Active Substance: PREGABALIN
  4. BACLOFEN. [Concomitant]
     Active Substance: BACLOFEN
  5. DECADRON [Concomitant]
     Active Substance: DEXAMETHASONE
  6. CABOMETYX [Suspect]
     Active Substance: CABOZANTINIB S-MALATE
     Indication: RENAL CANCER
     Dosage: 60 MG, QD
     Route: 048
     Dates: start: 20170211, end: 20171224
  7. FLOMAX [Concomitant]
     Active Substance: TAMSULOSIN HYDROCHLORIDE

REACTIONS (3)
  - Hospice care [Unknown]
  - Drug intolerance [Unknown]
  - Spinal cord neoplasm [Unknown]

NARRATIVE: CASE EVENT DATE: 20170313
